FAERS Safety Report 7744820-4 (Version None)
Quarter: 2011Q3

REPORT INFORMATION
  Report Type: 
  Country: None (occurrence: None)
  Receive Date: 20110912
  Receipt Date: 20110912
  Transmission Date: 20111222
  Serious: No
  Sender: FDA-Public Use
  Company Number: None

PATIENT
  Age: 11 Year
  Sex: Male
  Weight: 34.019 kg

DRUGS (1)
  1. METHYLPHENIDATE [Suspect]
     Indication: ATTENTION DEFICIT/HYPERACTIVITY DISORDER
     Dosage: 1
     Route: 048
     Dates: start: 20110805, end: 20110911

REACTIONS (10)
  - EDUCATIONAL PROBLEM [None]
  - AGITATION [None]
  - DISTURBANCE IN ATTENTION [None]
  - ANGER [None]
  - ECONOMIC PROBLEM [None]
  - PRODUCT SUBSTITUTION ISSUE [None]
  - RESTLESSNESS [None]
  - MEMORY IMPAIRMENT [None]
  - DEPRESSED MOOD [None]
  - PARENT-CHILD PROBLEM [None]
